FAERS Safety Report 7041896-7 (Version None)
Quarter: 2010Q4

REPORT INFORMATION
  Report Type: 
  Country: None (occurrence: None)
  Receive Date: 20101013
  Receipt Date: 20100324
  Transmission Date: 20110411
  Serious: No
  Sender: FDA-Public Use
  Company Number: US-ASTRAZENECA-2010SE13171

PATIENT
  Sex: Female
  Weight: 63.5 kg

DRUGS (6)
  1. SYMBICORT [Suspect]
     Indication: CHRONIC OBSTRUCTIVE PULMONARY DISEASE
     Dosage: 640 MICROGRAM
     Route: 055
     Dates: start: 20080201, end: 20080301
  2. SYMBICORT [Suspect]
     Dosage: 640 MICROGRAM
     Route: 055
     Dates: start: 20100101, end: 20100301
  3. SPIRIVA [Concomitant]
  4. ASPIRIN [Concomitant]
  5. ALBUTEROL WITH NEBULIZER [Concomitant]
  6. OXYGEN [Concomitant]
     Dosage: 2-5 LITRES

REACTIONS (2)
  - BACK PAIN [None]
  - SWELLING FACE [None]
